FAERS Safety Report 14275924 (Version 2)
Quarter: 2018Q1

REPORT INFORMATION
  Report Type: Spontaneous
  Country: GB (occurrence: GB)
  Receive Date: 20171212
  Receipt Date: 20180302
  Transmission Date: 20180508
  Serious: Yes (Other)
  Sender: FDA-Public Use
  Company Number: GB-AUROBINDO-AUR-APL-2017-44488

PATIENT
  Sex: Female

DRUGS (2)
  1. LEVETIRACETAM. [Suspect]
     Active Substance: LEVETIRACETAM
     Indication: SEIZURE
     Dosage: BEING TAKEN OF
     Route: 065
  2. CLOBAZAM [Concomitant]
     Active Substance: CLOBAZAM
     Indication: PRODUCT USED FOR UNKNOWN INDICATION

REACTIONS (8)
  - Depression [Recovered/Resolved]
  - Abnormal behaviour [Unknown]
  - Anxiety [Recovered/Resolved]
  - Confusional state [Recovered/Resolved]
  - Seizure [Not Recovered/Not Resolved]
  - Mood swings [Unknown]
  - Aggression [Unknown]
  - Thinking abnormal [Recovered/Resolved]
